FAERS Safety Report 4635560-9 (Version None)
Quarter: 2005Q2

REPORT INFORMATION
  Report Type: 
  Country: None (occurrence: None)
  Receive Date: 20050414
  Receipt Date: 20020516
  Transmission Date: 20051028
  Serious: Yes (Hospitalization)
  Sender: FDA-Public Use
  Company Number: US-MERCK-0205USA02027

PATIENT
  Age: 66 Year
  Sex: Female
  Weight: 125 kg

DRUGS (14)
  1. VIOXX [Suspect]
     Indication: OSTEOARTHRITIS
     Route: 048
     Dates: start: 20010101, end: 20010724
  2. VIOXX [Suspect]
     Route: 048
     Dates: start: 20010731
  3. VIOXX [Suspect]
     Route: 048
     Dates: start: 19991004, end: 20000101
  4. VIOXX [Suspect]
     Indication: PAIN IN EXTREMITY
     Route: 048
     Dates: start: 20010101, end: 20010724
  5. VIOXX [Suspect]
     Route: 048
     Dates: start: 20010731
  6. VIOXX [Suspect]
     Route: 048
     Dates: start: 19991004, end: 20000101
  7. VASOTEC [Concomitant]
     Indication: HYPERTENSION
     Route: 065
     Dates: start: 19870101
  8. GLIPIZIDE [Concomitant]
     Indication: DIABETES MELLITUS
     Route: 065
  9. ACTOS [Concomitant]
     Indication: DIABETES MELLITUS
     Route: 065
  10. BRETHINE [Concomitant]
     Route: 065
  11. LASIX [Concomitant]
     Route: 065
  12. K-DUR 10 [Concomitant]
     Route: 065
  13. FLEXERIL [Concomitant]
     Route: 065
  14. ALTACE [Concomitant]
     Route: 065

REACTIONS (22)
  - ACUTE MYOCARDIAL INFARCTION [None]
  - ACUTE PRERENAL FAILURE [None]
  - ACUTE RESPIRATORY FAILURE [None]
  - ANXIETY [None]
  - ARTHRITIS [None]
  - ASTHMA [None]
  - DEPRESSION [None]
  - HEART RATE INCREASED [None]
  - HEART RATE IRREGULAR [None]
  - HYPOTHYROIDISM [None]
  - INGROWING NAIL [None]
  - INJURY [None]
  - NAIL DISCOLOURATION [None]
  - NODULE [None]
  - OSTEOARTHRITIS [None]
  - PERICARDIAL EFFUSION [None]
  - PULMONARY OEDEMA [None]
  - RAYNAUD'S PHENOMENON [None]
  - RESPIRATORY DISORDER [None]
  - SLEEP APNOEA SYNDROME [None]
  - TACHYCARDIA [None]
  - TOE DEFORMITY [None]
